FAERS Safety Report 21872160 (Version 1)
Quarter: 2023Q1

REPORT INFORMATION
  Report Type: Spontaneous
  Country: US (occurrence: None)
  Receive Date: 20230113
  Receipt Date: 20230113
  Transmission Date: 20230417
  Serious: No
  Sender: FDA-Public Use
  Company Number: None

PATIENT
  Sex: Female

DRUGS (13)
  1. JADENU [Suspect]
     Active Substance: DEFERASIROX
     Indication: Anaemia
     Dosage: FREQUENCY : DAILY;?
     Route: 048
  2. AMLODIPINE [Concomitant]
     Active Substance: AMLODIPINE BESYLATE
  3. COUMADIN [Concomitant]
     Active Substance: WARFARIN SODIUM
  4. EXJADE [Concomitant]
     Active Substance: DEFERASIROX
  5. FOLIC ACID [Concomitant]
     Active Substance: FOLIC ACID
  6. HYDREA [Concomitant]
     Active Substance: HYDROXYUREA
  7. HYDROXYUREA [Concomitant]
     Active Substance: HYDROXYUREA
  8. LISINOPRIL [Concomitant]
     Active Substance: LISINOPRIL
  9. LOSARTAN [Concomitant]
     Active Substance: LOSARTAN
  10. METOPROLOL [Concomitant]
     Active Substance: METOPROLOL
  11. OLYSIO [Concomitant]
     Active Substance: SIMEPREVIR
  12. ACETAMINOPHEN\OXYCODONE HYDROCHLORIDE [Concomitant]
     Active Substance: ACETAMINOPHEN\OXYCODONE HYDROCHLORIDE
  13. SPIRONOLACTONE [Concomitant]
     Active Substance: SPIRONOLACTONE

REACTIONS (1)
  - Transfusion [None]
